FAERS Safety Report 6279803-7 (Version None)
Quarter: 2009Q3

REPORT INFORMATION
  Report Type: 
  Country: None (occurrence: None)
  Receive Date: 20090723
  Receipt Date: 20090713
  Transmission Date: 20100115
  Serious: Yes (Death)
  Sender: FDA-Public Use
  Company Number: US-PFIZER INC-2009198659

PATIENT
  Sex: Female

DRUGS (1)
  1. CAMPTOSAR [Suspect]
     Indication: GLIOBLASTOMA MULTIFORME
     Dosage: 249 MG, EVERY 2 WEEKS

REACTIONS (2)
  - DISEASE PROGRESSION [None]
  - GLIOBLASTOMA MULTIFORME [None]
